FAERS Safety Report 18727771 (Version 1)
Quarter: 2021Q1

REPORT INFORMATION
  Report Type: Spontaneous
  Country: US (occurrence: US)
  Receive Date: 20210111
  Receipt Date: 20210111
  Transmission Date: 20210419
  Serious: No
  Sender: FDA-Public Use
  Company Number: US-STRONGBRIDGE BIOPHARMA-2020-STR-000338

PATIENT
  Age: 52 Year
  Sex: Male

DRUGS (1)
  1. KEVEYIS [Suspect]
     Active Substance: DICHLORPHENAMIDE
     Indication: FAMILIAL PERIODIC PARALYSIS
     Dosage: 50 MG, QD
     Route: 048
     Dates: start: 20201212

REACTIONS (4)
  - Sinusitis [Unknown]
  - Feeling abnormal [Unknown]
  - Epigastric discomfort [Unknown]
  - Muscle spasms [Unknown]

NARRATIVE: CASE EVENT DATE: 20201212
